FAERS Safety Report 16683862 (Version 1)
Quarter: 2019Q3

REPORT INFORMATION
  Report Type: Spontaneous
  Country: GB (occurrence: GB)
  Receive Date: 20190808
  Receipt Date: 20190808
  Transmission Date: 20191004
  Serious: Yes (Other)
  Sender: FDA-Public Use
  Company Number: GB-MYLANLABS-2019M1073765

PATIENT
  Age: 30 Year
  Sex: Female
  Weight: 75 kg

DRUGS (10)
  1. FEMODENE [Concomitant]
     Active Substance: ETHINYL ESTRADIOL\GESTODENE
     Dosage: AS DIRECTED IN LEAFLET.
     Dates: start: 20190218
  2. PREDNISOLONE. [Concomitant]
     Active Substance: PREDNISOLONE
     Dosage: MORNING FOR 5 DAYS
     Dates: start: 20181121, end: 20181126
  3. ETHINYLESTRADIOL [Concomitant]
     Active Substance: ETHINYL ESTRADIOL
     Dosage: FOR 21 DAYS; SUBSEQUENT COURSE
     Dates: start: 20181025, end: 20181218
  4. NAPROXEN. [Suspect]
     Active Substance: NAPROXEN
     Indication: PRODUCT USED FOR UNKNOWN INDICATION
     Dosage: 500 MILLIGRAM
     Dates: start: 20190218, end: 20190218
  5. CODEINE PHOSPHATE [Concomitant]
     Active Substance: CODEINE PHOSPHATE
     Dosage: TAKE ONE -TWO 4 TIMES/DAY WITH PARACETAMOL
     Dates: start: 20180621, end: 20181218
  6. IBUPROFEN. [Concomitant]
     Active Substance: IBUPROFEN
     Dosage: 3 DOSAGE FORM, QD
     Dates: start: 20180621, end: 20181218
  7. CLENIL MODULITE [Concomitant]
     Active Substance: BECLOMETHASONE DIPROPIONATE
     Dosage: 4 DOSAGE FORM, QD
     Dates: start: 20150903, end: 20181218
  8. PARACETAMOL [Concomitant]
     Active Substance: ACETAMINOPHEN
     Dosage: 8 DOSAGE FORM, QD
     Dates: start: 20180621, end: 20181218
  9. GABAPENTIN. [Concomitant]
     Active Substance: GABAPENTIN
     Dosage: 3 DOSAGE FORM, QD
     Dates: start: 20180626, end: 20181218
  10. OLIVE OIL [Concomitant]
     Active Substance: OLIVE OIL
     Dosage: TO BE USED AS DIRECTED
     Dates: start: 20160914, end: 20181218

REACTIONS (2)
  - Pruritus [Recovered/Resolved]
  - Erythema [Recovered/Resolved]

NARRATIVE: CASE EVENT DATE: 20190218
